FAERS Safety Report 8261552-7 (Version None)
Quarter: 2012Q1

REPORT INFORMATION
  Report Type: 
  Country: None (occurrence: None)
  Receive Date: 20120330
  Receipt Date: 20120319
  Transmission Date: 20120608
  Serious: Yes (Other)
  Sender: FDA-Public Use
  Company Number: JPI-P-020461

PATIENT
  Age: 56 Year
  Sex: Female

DRUGS (1)
  1. XYREM [Suspect]
     Indication: NARCOLEPSY
     Dosage: 6;4.5 GM (3, 2.25 GM, 2 IN 1 D), ORAL
     Route: 048
     Dates: start: 20120223

REACTIONS (19)
  - POLLAKIURIA [None]
  - MIDDLE INSOMNIA [None]
  - BACK PAIN [None]
  - SCOLIOSIS [None]
  - SLUGGISHNESS [None]
  - INTERVERTEBRAL DISC PROTRUSION [None]
  - HEADACHE [None]
  - SOMNOLENCE [None]
  - URINARY INCONTINENCE [None]
  - GAIT DISTURBANCE [None]
  - PAIN IN EXTREMITY [None]
  - EXOSTOSIS [None]
  - ABDOMINAL PAIN UPPER [None]
  - FOOT FRACTURE [None]
  - LUMBAR SPINAL STENOSIS [None]
  - ASTHENIA [None]
  - NECK PAIN [None]
  - THERAPEUTIC RESPONSE DECREASED [None]
  - FATIGUE [None]
